FAERS Safety Report 25439578 (Version 1)
Quarter: 2025Q2

REPORT INFORMATION
  Report Type: Spontaneous
  Country: CH (occurrence: CH)
  Receive Date: 20250616
  Receipt Date: 20250616
  Transmission Date: 20250717
  Serious: Yes (Other)
  Sender: EPIC PHARM
  Company Number: CH-EPICPHARMA-CH-2025EPCLIT00718

PATIENT
  Age: 64 Year

DRUGS (3)
  1. GENTAMICIN SULFATE [Suspect]
     Active Substance: GENTAMICIN SULFATE
     Indication: Endocarditis enterococcal
     Route: 042
  2. AMOXICILLIN [Concomitant]
     Active Substance: AMOXICILLIN
     Indication: Endocarditis enterococcal
     Route: 042
  3. AMOXICILLIN [Concomitant]
     Active Substance: AMOXICILLIN
     Route: 042

REACTIONS (4)
  - Acute kidney injury [Recovered/Resolved]
  - Hydronephrosis [Recovered/Resolved]
  - Haematuria [Recovered/Resolved]
  - Product use in unapproved indication [Unknown]
